FAERS Safety Report 6022399-5 (Version None)
Quarter: 2008Q4

REPORT INFORMATION
  Report Type: 
  Country: None (occurrence: None)
  Receive Date: 20081223
  Receipt Date: 20081223
  Transmission Date: 20090506
  Serious: No
  Sender: FDA-Public Use
  Company Number: None

PATIENT
  Age: 69 Year
  Sex: Male
  Weight: 72.1219 kg

DRUGS (1)
  1. DILT-CD [Suspect]
     Indication: HYPERTENSION
     Dosage: TAKE 1 CAPSUL DAILY
     Dates: end: 20081007

REACTIONS (3)
  - BLOOD GLUCOSE INCREASED [None]
  - GLYCOSYLATED HAEMOGLOBIN INCREASED [None]
  - THERAPEUTIC RESPONSE UNEXPECTED WITH DRUG SUBSTITUTION [None]
